FAERS Safety Report 19722557 (Version 1)
Quarter: 2021Q3

REPORT INFORMATION
  Report Type: Report from Study
  Country: US (occurrence: US)
  Receive Date: 20210819
  Receipt Date: 20210819
  Transmission Date: 20211014
  Serious: Yes (Other)
  Sender: FDA-Public Use
  Company Number: US-B.I. PHARMACEUTICALS,INC./RIDGEFIELD-2021-BI-104367

PATIENT
  Sex: Female

DRUGS (1)
  1. OFEV [Suspect]
     Active Substance: NINTEDANIB
     Indication: IDIOPATHIC PULMONARY FIBROSIS
     Dosage: OFEV DOSE 200MG DAILY
     Route: 048
     Dates: start: 20210405, end: 20210716

REACTIONS (7)
  - Diarrhoea [Unknown]
  - Gastric disorder [Unknown]
  - Vein rupture [Unknown]
  - Nausea [Unknown]
  - Pneumonia [Unknown]
  - Flatulence [Unknown]
  - Blood pressure abnormal [Unknown]
